FAERS Safety Report 5467176-9 (Version None)
Quarter: 2007Q3

REPORT INFORMATION
  Report Type: 
  Country: None (occurrence: None)
  Receive Date: 20070920
  Receipt Date: 20070906
  Transmission Date: 20080115
  Serious: Yes (Other)
  Sender: FDA-Public Use
  Company Number: 2005EU002018

PATIENT
  Age: 54 Year
  Sex: Male

DRUGS (7)
  1. PROGRAF [Suspect]
     Indication: LIVER TRANSPLANT
     Dosage: D, D, 5 MG, UID/QD
     Dates: start: 20030401
  2. RITONAVIR(RITONAVIR) [Suspect]
     Indication: ANTIVIRAL PROPHYLAXIS
     Dosage: 300 MG, BID
  3. LAMIVUDINE [Concomitant]
  4. STAVUDINE [Concomitant]
  5. LOPINAVIR (LOPINAVIR) [Concomitant]
  6. NEVIRAPINE [Concomitant]
  7. MYCOPHENOLATE MOFETIL [Concomitant]

REACTIONS (12)
  - ANAL CANCER [None]
  - ASPERGILLOSIS [None]
  - BLOOD CULTURE POSITIVE [None]
  - COMPLICATIONS OF TRANSPLANTED LIVER [None]
  - DRUG INTERACTION [None]
  - DRUG TOXICITY [None]
  - ISCHAEMIA [None]
  - LIVER TRANSPLANT REJECTION [None]
  - OESOPHAGEAL PERFORATION [None]
  - RENAL FAILURE ACUTE [None]
  - STAPHYLOCOCCAL INFECTION [None]
  - WOUND INFECTION [None]
